FAERS Safety Report 15906671 (Version 1)
Quarter: 2019Q1

REPORT INFORMATION
  Report Type: Spontaneous
  Country: US (occurrence: US)
  Receive Date: 20190111
  Receipt Date: 20190111
  Transmission Date: 20190417
  Serious: No
  Sender: FDA-Public Use
  Company Number: None

PATIENT
  Age: 72 Year
  Sex: Female
  Weight: 83.01 kg

DRUGS (1)
  1. EZETI IBE/SIMVASTATIN 10-20MG [Suspect]
     Active Substance: EZETIMIBE\SIMVASTATIN

REACTIONS (2)
  - Laboratory test abnormal [None]
  - Weight increased [None]

NARRATIVE: CASE EVENT DATE: 2016
